FAERS Safety Report 9679099 (Version 1)
Quarter: 2013Q4

REPORT INFORMATION
  Report Type: Spontaneous
  Country: BR (occurrence: BR)
  Receive Date: 20131108
  Receipt Date: 20131108
  Transmission Date: 20140711
  Serious: Yes (Hospitalization, Other)
  Sender: FDA-Public Use
  Company Number: BR-ASTRAZENECA-2013SE80809

PATIENT
  Age: 52 Year
  Sex: Male
  Weight: 74 kg

DRUGS (6)
  1. ATENOL [Suspect]
     Route: 048
     Dates: end: 20131025
  2. ATENOL [Suspect]
     Route: 048
     Dates: start: 20131025
  3. ATACAND HCT [Suspect]
     Dosage: 8/12.5MG, DAILY
     Route: 048
  4. BRILINTA [Suspect]
     Indication: THROMBOSIS PROPHYLAXIS
     Route: 048
     Dates: start: 20131026
  5. SIMVASTATIN [Concomitant]
     Indication: BLOOD CHOLESTEROL INCREASED
     Dates: start: 2009
  6. GALVUS [Concomitant]
     Indication: DIABETES MELLITUS
     Dates: start: 2010

REACTIONS (4)
  - Diabetes mellitus [Unknown]
  - Venous occlusion [Recovered/Resolved]
  - Hypercholesterolaemia [Unknown]
  - Off label use [Not Recovered/Not Resolved]
